FAERS Safety Report 5837784-1 (Version None)
Quarter: 2008Q3

REPORT INFORMATION
  Report Type: 
  Country: None (occurrence: None)
  Receive Date: 20080807
  Receipt Date: 20080725
  Transmission Date: 20090109
  Serious: Yes (Hospitalization)
  Sender: FDA-Public Use
  Company Number: FR-GENENTECH-264733

PATIENT
  Sex: Female

DRUGS (7)
  1. RITUXIMAB [Suspect]
     Indication: DIFFUSE LARGE B-CELL LYMPHOMA
     Dosage: 675 MG, QD
     Route: 042
     Dates: start: 20080612
  2. CYCLOPHOSPHAMIDE [Suspect]
     Indication: DIFFUSE LARGE B-CELL LYMPHOMA
     Dosage: 2160 MG, QD
     Route: 042
     Dates: start: 20080612
  3. DOXORUBICIN HCL [Suspect]
     Indication: DIFFUSE LARGE B-CELL LYMPHOMA
     Dosage: 135 MG, QD
     Route: 042
     Dates: start: 20080612
  4. VINCRISTINE [Suspect]
     Indication: DIFFUSE LARGE B-CELL LYMPHOMA
     Dosage: 7.2 MG, QD
     Route: 042
     Dates: start: 20080612
  5. BLEOMYCIN SULFATE [Suspect]
     Indication: DIFFUSE LARGE B-CELL LYMPHOMA
     Dosage: 20 MG, QD
     Route: 042
     Dates: start: 20080612
  6. PREDNISONE TAB [Suspect]
     Indication: DIFFUSE LARGE B-CELL LYMPHOMA
     Dosage: 600 MG, QD
     Route: 042
     Dates: start: 20080612
  7. METHOTREXATE [Suspect]
     Indication: DIFFUSE LARGE B-CELL LYMPHOMA
     Dosage: 15 MG, QD
     Route: 042
     Dates: start: 20080612

REACTIONS (1)
  - FEBRILE BONE MARROW APLASIA [None]
